FAERS Safety Report 14403452 (Version 2)
Quarter: 2018Q1

REPORT INFORMATION
  Report Type: Spontaneous
  Country: US (occurrence: US)
  Receive Date: 20180117
  Receipt Date: 20180126
  Transmission Date: 20180509
  Serious: Yes (Hospitalization)
  Sender: FDA-Public Use
  Company Number: US-ABBVIE-18S-163-2218234-00

PATIENT
  Age: 63 Year
  Sex: Male
  Weight: 79 kg

DRUGS (2)
  1. ANDROGEL [Suspect]
     Active Substance: TESTOSTERONE
     Indication: PRODUCT USED FOR UNKNOWN INDICATION
     Dosage: 50 MG//5G
     Route: 061
     Dates: start: 20170505, end: 20170723
  2. VALACICLOVIR [Concomitant]
     Active Substance: VALACYCLOVIR HYDROCHLORIDE
     Indication: PRODUCT USED FOR UNKNOWN INDICATION
     Route: 065
     Dates: start: 20170203

REACTIONS (6)
  - Confusional state [Recovered/Resolved]
  - Fungal infection [Recovered/Resolved]
  - Night sweats [Recovered/Resolved]
  - Influenza [Recovered/Resolved]
  - Pulmonary mass [Not Recovered/Not Resolved]
  - Respiratory syncytial virus infection [Recovered/Resolved]

NARRATIVE: CASE EVENT DATE: 201707
